FAERS Safety Report 6749221-3 (Version None)
Quarter: 2010Q2

REPORT INFORMATION
  Report Type: 
  Country: None (occurrence: None)
  Receive Date: 20100601
  Receipt Date: 20100528
  Transmission Date: 20101027
  Serious: Yes (Disabling)
  Sender: FDA-Public Use
  Company Number: CA-ASTRAZENECA-2010SE15408

PATIENT
  Age: 67 Year
  Sex: Male

DRUGS (10)
  1. CRESTOR [Suspect]
     Indication: BLOOD CHOLESTEROL INCREASED
     Route: 048
     Dates: start: 20100105, end: 20100301
  2. CRESTOR [Suspect]
     Route: 048
     Dates: start: 20100410
  3. ATENOLOL [Concomitant]
  4. SERTRALINE HCL [Concomitant]
  5. SYNTHROID [Concomitant]
     Indication: HYPOTHYROIDISM
  6. ASPIRIN [Concomitant]
  7. PLAVIX [Concomitant]
  8. ZOLOFT [Concomitant]
  9. PANTOPRAZOLE [Concomitant]
  10. NITRO SPRAY [Concomitant]
     Indication: MUSCULOSKELETAL PAIN

REACTIONS (3)
  - DEAFNESS [None]
  - DIZZINESS [None]
  - ORTHOSTATIC HYPOTENSION [None]
